FAERS Safety Report 10143811 (Version 2)
Quarter: 2014Q2

REPORT INFORMATION
  Report Type: Spontaneous
  Country: US (occurrence: US)
  Receive Date: 20140430
  Receipt Date: 20140430
  Transmission Date: 20141212
  Serious: Yes (Other)
  Sender: FDA-Public Use
  Company Number: US-ASTRAZENECA-2014SE15558

PATIENT
  Age: 75 Year
  Sex: Female
  Weight: 55.8 kg

DRUGS (22)
  1. BRILINTA [Suspect]
     Indication: ACUTE CORONARY SYNDROME
     Route: 048
     Dates: start: 20131018, end: 20140203
  2. OMEPRAZOLE [Suspect]
     Route: 048
  3. PLAVIX [Concomitant]
  4. DILTIAZEM [Concomitant]
     Route: 048
  5. DILTIAZEM [Concomitant]
     Route: 048
  6. ASPIRIN [Concomitant]
     Route: 048
  7. SPIRONOLACTONE [Concomitant]
     Route: 048
  8. ADVAIR [Concomitant]
     Dosage: 250 MCG - 50 MCG INHALATION POWDER , 1 PUFF INH, BID
  9. SPIREVA [Concomitant]
     Dosage: INHALE ONE CAPSULE EVERY DAY
     Route: 055
  10. THEOPHYLLINE [Concomitant]
     Route: 048
  11. LORAZEPAN [Concomitant]
     Indication: SLEEP DISORDER
     Route: 048
  12. SYNTHROID [Concomitant]
     Route: 048
  13. AMBIEN [Concomitant]
     Indication: INSOMNIA
     Route: 048
  14. FLEXERIL [Concomitant]
     Route: 048
  15. LOVENOX [Concomitant]
     Dosage: 30 MG 0.3 ML EVERY 12 HOUR
     Route: 058
  16. NITROSTAT [Concomitant]
     Indication: CHEST PAIN
     Dosage: 1.4 MG, 1 TAB, SUBLINGUAL, EVERY 5 MIN, AS REQUIRED
     Route: 060
  17. PAMELOR [Concomitant]
  18. PROTONIX [Concomitant]
  19. TYLENOL [Concomitant]
     Indication: HEADACHE
     Dosage: 2 TAB EVERY 4 HOUR
     Route: 048
  20. XANAX [Concomitant]
     Route: 048
  21. LATANOPROST [Concomitant]
     Dosage: 0.005 % OPTHALMIC SOLUTION 1 DROP EVERY NIGHT
  22. MELOXICAM [Concomitant]
     Indication: PAIN
     Route: 048

REACTIONS (5)
  - Pulmonary embolism [Unknown]
  - Renal failure [Unknown]
  - Blood creatinine increased [Unknown]
  - Myocardial infarction [Unknown]
  - Dyspnoea [Recovered/Resolved]
